FAERS Safety Report 23327193 (Version 1)
Quarter: 2023Q4

REPORT INFORMATION
  Report Type: Spontaneous
  Country: US (occurrence: None)
  Receive Date: 20231221
  Receipt Date: 20231221
  Transmission Date: 20240110
  Serious: Yes (Hospitalization)
  Sender: FDA-Public Use
  Company Number: None

PATIENT
  Sex: Male

DRUGS (1)
  1. NIVESTYM [Suspect]
     Active Substance: FILGRASTIM-AAFI
     Dosage: FREQUENCY : EVERY OTHER DAY;?
     Route: 058
     Dates: start: 202311

REACTIONS (2)
  - Pyrexia [None]
  - Neoplasm malignant [None]
